FAERS Safety Report 23794724 (Version 1)
Quarter: 2024Q2

REPORT INFORMATION
  Report Type: Spontaneous
  Country: US (occurrence: US)
  Receive Date: 20240429
  Receipt Date: 20240429
  Transmission Date: 20240715
  Serious: No
  Sender: FDA-Public Use
  Company Number: US-BAYER-2024A059143

PATIENT
  Age: 79 Year
  Sex: Male

DRUGS (9)
  1. NUBEQA [Suspect]
     Active Substance: DAROLUTAMIDE
     Indication: Prostate cancer
     Dosage: UNK
  2. ORGOVYX [Suspect]
     Active Substance: RELUGOLIX
     Indication: Neoplasm malignant
     Dosage: 120 MG, QD
     Dates: start: 20221115
  3. ORGOVYX [Suspect]
     Active Substance: RELUGOLIX
     Indication: Neoplasm malignant
     Dosage: UNK
  4. ORGOVYX [Suspect]
     Active Substance: RELUGOLIX
     Indication: Neoplasm malignant
     Dosage: UNK
  5. ORGOVYX [Suspect]
     Active Substance: RELUGOLIX
     Indication: Neoplasm malignant
     Dosage: UNK
  6. ORGOVYX [Suspect]
     Active Substance: RELUGOLIX
     Indication: Neoplasm malignant
     Dosage: UNK
  7. APALUTAMIDE [Suspect]
     Active Substance: APALUTAMIDE
     Indication: Neoplasm malignant
     Dosage: UNK
  8. XTANDI [Suspect]
     Active Substance: ENZALUTAMIDE
     Indication: Neoplasm malignant
     Dosage: 160 MG
     Dates: start: 20230328
  9. XTANDI [Suspect]
     Active Substance: ENZALUTAMIDE
     Indication: Neoplasm malignant
     Dosage: 80 MG

REACTIONS (16)
  - Muscle disorder [Not Recovered/Not Resolved]
  - Limb discomfort [Unknown]
  - Gait disturbance [Unknown]
  - Pain [Unknown]
  - Pain in extremity [Not Recovered/Not Resolved]
  - Hot flush [Unknown]
  - Balance disorder [Not Recovered/Not Resolved]
  - Dizziness [Not Recovered/Not Resolved]
  - Fatigue [Not Recovered/Not Resolved]
  - Asthenia [Not Recovered/Not Resolved]
  - Back pain [Not Recovered/Not Resolved]
  - Hypoaesthesia [Unknown]
  - Incorrect dosage administered [Not Recovered/Not Resolved]
  - Product availability issue [None]
  - Incorrect dose administered [Recovered/Resolved]
  - Product dose omission in error [None]

NARRATIVE: CASE EVENT DATE: 20221115
